FAERS Safety Report 5003546-0 (Version None)
Quarter: 2006Q2

REPORT INFORMATION
  Report Type: 
  Country: None (occurrence: None)
  Receive Date: 20060511
  Receipt Date: 20060503
  Transmission Date: 20061013
  Serious: Yes (Death, Life-Threatening, Hospitalization)
  Sender: FDA-Public Use
  Company Number: 2006-BP-05046RO

PATIENT
  Age: 37 Year
  Sex: Male

DRUGS (5)
  1. METHADONE HCL [Suspect]
     Dosage: 130 MG DAILY
  2. COCAINE         (COCAINE) [Suspect]
     Dosage: IN
  3. FLUOXETINE [Concomitant]
  4. TRAZODONE HCL [Concomitant]
  5. OLANZAPINE [Concomitant]

REACTIONS (8)
  - ANOXIC ENCEPHALOPATHY [None]
  - BRADYCARDIA [None]
  - CARDIAC ARREST [None]
  - DRUG ABUSER [None]
  - DRUG WITHDRAWAL SYNDROME [None]
  - ELECTROCARDIOGRAM QT CORRECTED INTERVAL PROLONGED [None]
  - ELECTROCARDIOGRAM QT PROLONGED [None]
  - PNEUMONIA [None]
